FAERS Safety Report 6091158-X (Version None)
Quarter: 2009Q1

REPORT INFORMATION
  Report Type: 
  Country: None (occurrence: None)
  Receive Date: 20090223
  Receipt Date: 20090223
  Transmission Date: 20090719
  Serious: No
  Sender: FDA-Public Use
  Company Number: None

PATIENT
  Age: 72 Year
  Sex: Male
  Weight: 78.4723 kg

DRUGS (1)
  1. ELIGARD [Suspect]
     Indication: PROSTATE CANCER
     Dosage: 4MONTH

REACTIONS (3)
  - MEDICATION ERROR [None]
  - PROSTATIC SPECIFIC ANTIGEN INCREASED [None]
  - WRONG TECHNIQUE IN DRUG USAGE PROCESS [None]
